FAERS Safety Report 12614065 (Version 8)
Quarter: 2017Q2

REPORT INFORMATION
  Report Type: Report from Study
  Country: FR (occurrence: FR)
  Receive Date: 20160802
  Receipt Date: 20170530
  Transmission Date: 20170830
  Serious: Yes (Death, Hospitalization, Other)
  Sender: FDA-Public Use
  Company Number: FR-PFIZER INC-2016356169

PATIENT
  Age: 68 Year
  Sex: Female
  Weight: 74 kg

DRUGS (8)
  1. XGEVA [Concomitant]
     Active Substance: DENOSUMAB
     Indication: METASTASES TO BONE
     Dosage: 120 MG, UNK
     Route: 058
  2. LEVOTHYROX [Concomitant]
     Active Substance: LEVOTHYROXINE
     Indication: HYPOTHYROIDISM
     Dosage: 125 UG, UNK
     Route: 048
  3. FULVESTRANT [Suspect]
     Active Substance: FULVESTRANT
     Indication: BREAST CANCER METASTATIC
     Dosage: 500 MG, CYCLIC ON DAY 1
     Dates: start: 20160708
  4. PALBOCICLIB [Suspect]
     Active Substance: PALBOCICLIB
     Indication: BREAST CANCER METASTATIC
     Dosage: 125 MG, DAILY
     Route: 048
     Dates: start: 20160708
  5. PALBOCICLIB [Suspect]
     Active Substance: PALBOCICLIB
     Dosage: 125 MG, DAILY
     Route: 048
     Dates: start: 20160808
  6. PALBOCICLIB [Suspect]
     Active Substance: PALBOCICLIB
     Dosage: 125 MG, DAILY
     Route: 048
     Dates: start: 20161003, end: 20170114
  7. NOZINAN [Concomitant]
     Active Substance: LEVOMEPROMAZINE
     Indication: DEPRESSION
     Dosage: UNK, DAILY
     Route: 048
  8. IMOVANE [Concomitant]
     Active Substance: ZOPICLONE
     Indication: INSOMNIA
     Dosage: UNK
     Route: 048

REACTIONS (21)
  - Pericarditis [Unknown]
  - Oedema peripheral [Unknown]
  - Lymphoedema [Unknown]
  - Somnolence [Unknown]
  - Pericarditis constrictive [Unknown]
  - Anxiety [Unknown]
  - Breath sounds abnormal [Unknown]
  - Pleural effusion [Unknown]
  - Dry mouth [Unknown]
  - Localised oedema [Unknown]
  - Cardiac failure [Unknown]
  - Asthenia [Unknown]
  - Cardiac tamponade [Unknown]
  - Atrial fibrillation [Unknown]
  - Nausea [Unknown]
  - Dyspnoea [Unknown]
  - General physical health deterioration [Unknown]
  - Neutropenia [Unknown]
  - Decreased appetite [Unknown]
  - Neoplasm progression [Fatal]
  - Renal impairment [Unknown]

NARRATIVE: CASE EVENT DATE: 201607
